FAERS Safety Report 18632079 (Version 1)
Quarter: 2020Q4

REPORT INFORMATION
  Report Type: Report from Study
  Country: None (occurrence: US)
  Receive Date: 20201218
  Receipt Date: 20201218
  Transmission Date: 20210114
  Serious: Yes (Hospitalization, Other)
  Sender: FDA-Public Use
  Company Number: US-ABBVIE-20K-163-3693692-00

PATIENT
  Sex: Female

DRUGS (3)
  1. VENCLEXTA [Suspect]
     Active Substance: VENETOCLAX
     Indication: B-CELL LYMPHOMA
     Route: 048
  2. VENCLEXTA [Suspect]
     Active Substance: VENETOCLAX
     Dosage: TAKING 2 PILLS
     Route: 048
  3. CORTISONE [Concomitant]
     Active Substance: CORTISONE
     Indication: PRODUCT USED FOR UNKNOWN INDICATION

REACTIONS (6)
  - Skin ulcer [Unknown]
  - Neoplasm [Unknown]
  - Intentional product misuse [Unknown]
  - Bone pain [Recovering/Resolving]
  - Insomnia [Unknown]
  - Pain [Unknown]
